FAERS Safety Report 4596018-9 (Version None)
Quarter: 2005Q1

REPORT INFORMATION
  Report Type: 
  Country: None (occurrence: None)
  Receive Date: 20050224
  Receipt Date: 20050224
  Transmission Date: 20050727
  Serious: No
  Sender: FDA-Public Use
  Company Number: None

PATIENT
  Age: 52 Year
  Sex: Female

DRUGS (1)
  1. OMNISCAN [Suspect]
     Indication: NUCLEAR MAGNETIC RESONANCE IMAGING
     Dosage: 20 ML IV X ONE
     Route: 042
     Dates: start: 20050127

REACTIONS (7)
  - INJECTION SITE ERYTHEMA [None]
  - INJECTION SITE OEDEMA [None]
  - LOCALISED OEDEMA [None]
  - OEDEMA [None]
  - RASH [None]
  - SECRETION DISCHARGE [None]
  - SWELLING FACE [None]
